FAERS Safety Report 24072856 (Version 1)
Quarter: 2024Q3

REPORT INFORMATION
  Report Type: Spontaneous
  Country: US (occurrence: None)
  Receive Date: 20240710
  Receipt Date: 20240710
  Transmission Date: 20241017
  Serious: Yes (Other)
  Sender: Public
  Company Number: None

PATIENT
  Sex: Male

DRUGS (10)
  1. TACROLIMUS [Suspect]
     Active Substance: TACROLIMUS
     Indication: Liver transplant
     Dosage: 1 MG TWICE A DAY ORAL
     Route: 048
     Dates: start: 20150803
  2. ALBUTEROL HFA INH [Concomitant]
  3. AMLODIPINE 10MG TAB [Concomitant]
  4. FENOFIBRATE [Concomitant]
     Active Substance: FENOFIBRATE
  5. IBUPROFEN 800MG TAB [Concomitant]
  6. LISINOPRIL [Concomitant]
     Active Substance: LISINOPRIL
  7. MESALAMINE 0.375GM CAP [Concomitant]
  8. PANTOPRAZOLE 40MG TAB [Concomitant]
  9. PRAVASTATIN 40MG TAB [Concomitant]
  10. BREO ELLIPTA 100-25MCG INH [Concomitant]

REACTIONS (1)
  - Skin cancer [None]
